FAERS Safety Report 5580783-8 (Version None)
Quarter: 2008Q1

REPORT INFORMATION
  Report Type: 
  Country: None (occurrence: None)
  Receive Date: 20080103
  Receipt Date: 20071231
  Transmission Date: 20080703
  Serious: Yes (Other)
  Sender: FDA-Public Use
  Company Number: GB-BOEHRINGER INGELHEIM PHARMACEUTICALS, INC.-2007-UK-04115UK

PATIENT
  Sex: Female

DRUGS (4)
  1. DIPYRIDAMOLE [Suspect]
     Indication: PAIN
     Dosage: 100MG - 8/1 DAYS
     Route: 048
  2. CALCIUM CARBONATE [Concomitant]
  3. POTASSIUM BICARBONATE [Concomitant]
  4. RANITIDINE HCL [Concomitant]

REACTIONS (11)
  - ACCIDENTAL OVERDOSE [None]
  - BLOOD PRESSURE DECREASED [None]
  - COUGH [None]
  - DRUG INEFFECTIVE FOR UNAPPROVED INDICATION [None]
  - GASTROINTESTINAL HAEMORRHAGE [None]
  - GASTROOESOPHAGEAL REFLUX DISEASE [None]
  - MEDICATION ERROR [None]
  - PRURITUS GENERALISED [None]
  - RASH [None]
  - SOMNOLENCE [None]
  - VAGINAL HAEMORRHAGE [None]
